FAERS Safety Report 16976936 (Version 2)
Quarter: 2020Q3

REPORT INFORMATION
  Report Type: Spontaneous
  Country: CN (occurrence: CN)
  Receive Date: 20191030
  Receipt Date: 20200902
  Transmission Date: 20201102
  Serious: Yes (Life-Threatening, Other)
  Sender: FDA-Public Use
  Company Number: NVSC2019CN018168

PATIENT
  Age: 54 Year
  Sex: Female

DRUGS (4)
  1. EVEROLIMUS. [Suspect]
     Active Substance: EVEROLIMUS
     Indication: SQUAMOUS CELL CARCINOMA
     Dosage: 5 MG, QD
     Route: 065
  2. OSIMERTINIB. [Suspect]
     Active Substance: OSIMERTINIB
     Indication: LUNG ADENOCARCINOMA
  3. EVEROLIMUS. [Suspect]
     Active Substance: EVEROLIMUS
     Indication: LUNG ADENOCARCINOMA
  4. OSIMERTINIB. [Suspect]
     Active Substance: OSIMERTINIB
     Indication: SQUAMOUS CELL CARCINOMA
     Dosage: 80 MG
     Route: 065

REACTIONS (3)
  - Squamous cell carcinoma of lung [Unknown]
  - Malignant neoplasm progression [Unknown]
  - Product use in unapproved indication [Unknown]
